FAERS Safety Report 18886087 (Version 1)
Quarter: 2021Q1

REPORT INFORMATION
  Report Type: Report from Study
  Country: BR (occurrence: BR)
  Receive Date: 20210212
  Receipt Date: 20210212
  Transmission Date: 20210420
  Serious: Yes (Death, Hospitalization, Other)
  Sender: FDA-Public Use
  Company Number: NVSC2021BR032917

PATIENT
  Age: 75 Year
  Sex: Male

DRUGS (1)
  1. ENTRESTO [Suspect]
     Active Substance: SACUBITRIL\VALSARTAN
     Indication: PRODUCT USED FOR UNKNOWN INDICATION
     Dosage: 50 MG, UNKNOWN (ABOUT 1 WEEK)
     Route: 065

REACTIONS (13)
  - Dysstasia [Unknown]
  - Dysuria [Unknown]
  - Malaise [Fatal]
  - Bradycardia [Unknown]
  - Condition aggravated [Not Recovered/Not Resolved]
  - Asthenia [Unknown]
  - Chromaturia [Unknown]
  - Pain [Unknown]
  - Feeding disorder [Unknown]
  - Discouragement [Unknown]
  - Renal disorder [Fatal]
  - Abdominal pain [Unknown]
  - Dyspnoea [Unknown]

NARRATIVE: CASE EVENT DATE: 20210127
